FAERS Safety Report 23073735 (Version 1)
Quarter: 2023Q4

REPORT INFORMATION
  Report Type: Spontaneous
  Country: IN (occurrence: IN)
  Receive Date: 20231017
  Receipt Date: 20231017
  Transmission Date: 20240110
  Serious: Yes (Other)
  Sender: FDA-Public Use
  Company Number: IN-MYLANLABS-2023M1108641

PATIENT
  Age: 39 Year
  Sex: Female

DRUGS (7)
  1. DOXORUBICIN [Suspect]
     Active Substance: DOXORUBICIN
     Indication: Breast cancer
     Dosage: UNK, FIRST CHEMOTHERAPY CYCLE (DOSE UNKNOWN)
     Route: 065
  2. DOXORUBICIN [Suspect]
     Active Substance: DOXORUBICIN
     Dosage: 50 MILLIGRAM, SECOND CHEMOTHERAPY CYCLES: IN 100ML NORMAL SALINE, INFUSION
     Route: 065
  3. IFOSFAMIDE [Suspect]
     Active Substance: IFOSFAMIDE
     Indication: Breast cancer
     Dosage: UNK, FIRST CHEMOTHERAPY CYCLE (DOSE UNKNOWN)
     Route: 065
  4. IFOSFAMIDE [Suspect]
     Active Substance: IFOSFAMIDE
     Dosage: 5 GRAM, SECOND CHEMOTHERAPY CYCLES: IN 500ML NORMAL SALINE AND RECEIVED OVER 1 HOUR, INFUSION
     Route: 065
  5. SODIUM CHLORIDE [Concomitant]
     Active Substance: SODIUM CHLORIDE
     Indication: Vehicle solution use
     Dosage: 500 MILLILITER INFUSION, IFOSFAMIDE IN 500ML NORMAL SALINE
     Route: 065
  6. SODIUM CHLORIDE [Concomitant]
     Active Substance: SODIUM CHLORIDE
     Dosage: 100 MILLILITER INFUSION AND DOXORUBICIN 100ML NORMAL SALINEAND DOXORUBICIN 100ML NORMAL SALINE
     Route: 065
  7. MESNA [Concomitant]
     Active Substance: MESNA
     Indication: Product used for unknown indication
     Dosage: 1 GRAM
     Route: 065

REACTIONS (2)
  - Extrapyramidal disorder [Recovered/Resolved]
  - Neurotoxicity [Recovered/Resolved]
